FAERS Safety Report 5095319-8 (Version None)
Quarter: 2006Q3

REPORT INFORMATION
  Report Type: 
  Country: None (occurrence: None)
  Receive Date: 20060830
  Receipt Date: 20060816
  Transmission Date: 20061208
  Serious: Yes (Hospitalization, Other)
  Sender: FDA-Public Use
  Company Number: US-2006-005420

PATIENT
  Age: 57 Year
  Sex: Male
  Weight: 90.7 kg

DRUGS (14)
  1. BETASERON [Suspect]
     Indication: RELAPSING-REMITTING MULTIPLE SCLEROSIS
     Dosage: 8 MIU, EVERY 2D, SUBCUTANEOUS
     Route: 058
     Dates: start: 19940915
  2. BACLOFEN [Concomitant]
  3. COLCHICUM JTL LIQ [Concomitant]
  4. NORVASC [Concomitant]
  5. PROMETHAZINE [Concomitant]
  6. VALIUM [Concomitant]
  7. AMANTADINE HCL [Concomitant]
  8. ZANAFLEX [Concomitant]
  9. VYTORIN [Concomitant]
  10. CATAPRES [Concomitant]
  11. NITROGLYCERIN [Concomitant]
  12. CYMBALTA [Concomitant]
  13. NORTRIPTYLINE HCL [Concomitant]
  14. PREVACID [Concomitant]

REACTIONS (38)
  - ABDOMINAL PAIN UPPER [None]
  - ARTHRALGIA [None]
  - ASTHENIA [None]
  - ASTHMA [None]
  - BACK PAIN [None]
  - BEZOAR [None]
  - BODY TEMPERATURE DECREASED [None]
  - COLONIC POLYP [None]
  - CONSTIPATION [None]
  - DECREASED APPETITE [None]
  - DIABETES MELLITUS INSULIN-DEPENDENT [None]
  - DIARRHOEA [None]
  - DIZZINESS [None]
  - DRUG INEFFECTIVE [None]
  - DYSPEPSIA [None]
  - DYSPHAGIA [None]
  - DYSPNOEA [None]
  - FATIGUE [None]
  - GAIT DISTURBANCE [None]
  - GASTRITIS [None]
  - GASTROINTESTINAL MOTILITY DISORDER [None]
  - HAEMATOCRIT DECREASED [None]
  - HEART RATE IRREGULAR [None]
  - HEPATITIS [None]
  - HIATUS HERNIA [None]
  - HYPOAESTHESIA [None]
  - IMPAIRED GASTRIC EMPTYING [None]
  - INFECTION [None]
  - JAUNDICE [None]
  - NEPHROLITHIASIS [None]
  - PHARYNGOLARYNGEAL PAIN [None]
  - PNEUMONIA ASPIRATION [None]
  - RETINOPATHY [None]
  - RHEUMATOID ARTHRITIS [None]
  - SYNCOPE [None]
  - VOMITING [None]
  - WEIGHT DECREASED [None]
  - WHEEZING [None]
